FAERS Safety Report 10436246 (Version 3)
Quarter: 2014Q3

REPORT INFORMATION
  Report Type: Report from Study
  Country: DE (occurrence: DE)
  Receive Date: 20140908
  Receipt Date: 20140930
  Transmission Date: 20150326
  Serious: Yes (Death)
  Sender: FDA-Public Use
  Company Number: DE-SA-2014SA119970

PATIENT
  Age: 80 Year
  Sex: Male
  Weight: 59 kg

DRUGS (7)
  1. FILGRASTIM [Concomitant]
     Active Substance: FILGRASTIM
  2. XGEVA [Concomitant]
     Active Substance: DENOSUMAB
  3. JEVTANA [Suspect]
     Active Substance: CABAZITAXEL
     Indication: PROSTATE CANCER
     Dosage: DOSE:30 UNIT(S)
     Route: 065
     Dates: start: 20131119, end: 20140602
  4. ANALGESICS [Concomitant]
     Active Substance: UNSPECIFIED INGREDIENT
  5. BLOPRESS [Concomitant]
     Active Substance: CANDESARTAN CILEXETIL
     Indication: DIABETES MELLITUS
  6. GRANISETRON [Concomitant]
     Active Substance: GRANISETRON
  7. BISOPROLOL [Concomitant]
     Active Substance: BISOPROLOL
     Indication: HYPERTENSION

REACTIONS (4)
  - White blood cell count decreased [Unknown]
  - Sudden death [Fatal]
  - Anaemia [Not Recovered/Not Resolved]
  - Platelet count decreased [Unknown]

NARRATIVE: CASE EVENT DATE: 20140617
